FAERS Safety Report 4653582-9 (Version None)
Quarter: 2005Q2

REPORT INFORMATION
  Report Type: 
  Country: None (occurrence: None)
  Receive Date: 20050404
  Receipt Date: 20050114
  Transmission Date: 20051028
  Serious: No
  Sender: FDA-Public Use
  Company Number: USA050188422

PATIENT
  Age: 26 Year
  Sex: Female
  Weight: 68 kg

DRUGS (4)
  1. CYMBALTA [Suspect]
     Indication: BIPOLAR I DISORDER
     Dosage: 30 MG DAY
     Dates: start: 20041230
  2. PROZAC WEEKLY [Suspect]
  3. LOPRAZEPAM [Concomitant]
  4. ASPIRIN [Concomitant]

REACTIONS (5)
  - ANXIETY [None]
  - FEAR [None]
  - INSOMNIA [None]
  - MANIA [None]
  - THINKING ABNORMAL [None]
